FAERS Safety Report 13030720 (Version 2)
Quarter: 2017Q2

REPORT INFORMATION
  Report Type: Report from Study
  Country: DE (occurrence: DE)
  Receive Date: 20161215
  Receipt Date: 20170509
  Transmission Date: 20170830
  Serious: Yes (Hospitalization)
  Sender: FDA-Public Use
  Company Number: DE-CELGENEUS-DEU-2016120018

PATIENT
  Age: 76 Year
  Sex: Female
  Weight: 59 kg

DRUGS (15)
  1. ASPIRIN. [Concomitant]
     Active Substance: ASPIRIN
     Indication: CEREBROVASCULAR ACCIDENT
     Dosage: 100
     Route: 065
  2. ABRAXANE [Suspect]
     Active Substance: PACLITAXEL
     Indication: NON-SMALL CELL LUNG CANCER
     Route: 041
     Dates: start: 20160928, end: 20161123
  3. DELIX [Concomitant]
     Active Substance: RAMIPRIL
     Indication: HYPERTONIA
     Dosage: 5
     Route: 065
  4. MIRTAZAPIN BETA [Concomitant]
     Indication: INSOMNIA
     Dosage: 7.5
     Route: 065
  5. PANTOZOL [Concomitant]
     Active Substance: PANTOPRAZOLE SODIUM
     Indication: DYSPEPSIA
     Dosage: 80
     Route: 065
  6. HCT-BETA [Concomitant]
     Indication: HYPERTONIA
     Dosage: 12.5
     Route: 065
  7. CARMEN [Concomitant]
     Active Substance: LERCANIDIPINE
     Indication: HYPERTONIA
     Dosage: 10
     Route: 065
  8. ISDN-RATIOPHARM [Concomitant]
     Indication: MYOCARDIAL INFARCTION
     Dosage: 40
     Route: 065
  9. ERYPO [Concomitant]
     Indication: ANAEMIA
     Route: 065
     Dates: start: 20161104
  10. INSUMAN RAPID [Concomitant]
     Active Substance: INSULIN HUMAN
     Indication: DIABETES MELLITUS
     Route: 065
  11. INSUMAN [Concomitant]
     Active Substance: INSULIN HUMAN
     Indication: DIABETES MELLITUS
     Route: 065
  12. BISOPROLOL-RATIOPHARM [Concomitant]
     Indication: MYOCARDIAL INFARCTION
     Dosage: 5
     Route: 065
  13. DIAZEPAM-RATIOPHARM [Concomitant]
     Indication: INSOMNIA
     Dosage: 1
     Route: 065
  14. TAVANIC [Concomitant]
     Active Substance: LEVOFLOXACIN
     Indication: PRODUCT USED FOR UNKNOWN INDICATION
     Route: 065
     Dates: start: 20161130, end: 20161213
  15. CARBOPLATIN. [Suspect]
     Active Substance: CARBOPLATIN
     Indication: NON-SMALL CELL LUNG CANCER
     Dosage: MG*MIN/ML
     Route: 065
     Dates: start: 20160928

REACTIONS (1)
  - Subileus [Recovered/Resolved]

NARRATIVE: CASE EVENT DATE: 20161130
